FAERS Safety Report 8987668 (Version 1)
Quarter: 2012Q4

REPORT INFORMATION
  Report Type: 
  Country: US (occurrence: US)
  Receive Date: 20121227
  Receipt Date: 20121227
  Transmission Date: 20130627
  Serious: No
  Sender: FDA-Public Use
  Company Number: US-PFIZER INC-2012326140

PATIENT
  Age: 40 Year
  Sex: Male

DRUGS (4)
  1. REVATIO [Suspect]
     Dosage: UNK
  2. LETAIRIS [Suspect]
     Indication: CHRONIC PULMONARY HEART DISEASE
     Dosage: 10 mg, 1x/day
     Route: 048
     Dates: start: 20110427
  3. OMEPRAZOLE [Concomitant]
     Dosage: UNK
  4. EPOPROSTENOL [Concomitant]

REACTIONS (3)
  - Dyspepsia [Unknown]
  - Diarrhoea [Unknown]
  - Nausea [Unknown]
